FAERS Safety Report 7276555-9 (Version None)
Quarter: 2011Q1

REPORT INFORMATION
  Report Type: 
  Country: None (occurrence: None)
  Receive Date: 20110204
  Receipt Date: 20110126
  Transmission Date: 20110831
  Serious: Yes (Hospitalization)
  Sender: FDA-Public Use
  Company Number: CH-ASTRAZENECA-2011SE04926

PATIENT
  Age: 79 Year
  Sex: Female

DRUGS (4)
  1. SEROQUEL [Suspect]
     Route: 048
     Dates: start: 20101110, end: 20101117
  2. SERESTA [Concomitant]
     Route: 048
     Dates: start: 20101111, end: 20101122
  3. SEROQUEL [Suspect]
     Route: 048
     Dates: start: 20101109
  4. NEBIVOLOL HCL [Concomitant]
     Route: 048
     Dates: start: 20101110

REACTIONS (3)
  - JOINT SWELLING [None]
  - OEDEMA PERIPHERAL [None]
  - PAIN IN EXTREMITY [None]
